FAERS Safety Report 9448760 (Version 3)
Quarter: 2014Q1

REPORT INFORMATION
  Report Type: Spontaneous
  Country: DK (occurrence: DK)
  Receive Date: 20130808
  Receipt Date: 20140301
  Transmission Date: 20141002
  Serious: Yes (Death, Life-Threatening, Hospitalization)
  Sender: FDA-Public Use
  Company Number: DK-ASTRAZENECA-2013SE61486

PATIENT
  Age: 10012 Day
  Sex: Male
  Weight: 125 kg

DRUGS (2)
  1. SEROQUEL PROLONG [Suspect]
     Indication: ANXIETY
     Dosage: 150 MG 1-2 TIMES PER DAY, AN ADDITIONAL 25 MG MAY BE ADDED FOR THE NIGHT
     Route: 048
     Dates: start: 20121103, end: 20130722
  2. SEROQUEL PROLONG [Suspect]
     Indication: ANXIETY
     Dosage: UP TO 400 MG/DAY
     Route: 048

REACTIONS (7)
  - Diabetic ketoacidosis [Fatal]
  - Hypertriglyceridaemia [Fatal]
  - Shock [Fatal]
  - Adrenocortical insufficiency acute [Fatal]
  - Multi-organ failure [Fatal]
  - Pancreatitis necrotising [Fatal]
  - Abdominal pain upper [Not Recovered/Not Resolved]
